FAERS Safety Report 18792073 (Version 2)
Quarter: 2022Q1

REPORT INFORMATION
  Report Type: Report from Study
  Country: CA (occurrence: CA)
  Receive Date: 20210127
  Receipt Date: 20220201
  Transmission Date: 20220423
  Serious: Yes (Hospitalization)
  Sender: FDA-Public Use
  Company Number: CA-JNJFOC-20210130921

PATIENT
  Age: 4 Decade
  Sex: Male
  Weight: 58 kg

DRUGS (2)
  1. REMICADE [Suspect]
     Active Substance: INFLIXIMAB
     Indication: Crohn^s disease
     Route: 042
     Dates: start: 20081112
  2. REMICADE [Suspect]
     Active Substance: INFLIXIMAB
     Dosage: ACCELERATED INFUSION IN 2016.
     Route: 042
     Dates: start: 20160505

REACTIONS (3)
  - Intestinal resection [Recovering/Resolving]
  - Incorrect drug administration rate [Unknown]
  - Off label use [Unknown]

NARRATIVE: CASE EVENT DATE: 20160101
